FAERS Safety Report 6545579-9 (Version None)
Quarter: 2010Q1

REPORT INFORMATION
  Report Type: 
  Country: None (occurrence: None)
  Receive Date: 20100121
  Receipt Date: 20100119
  Transmission Date: 20100710
  Serious: Yes (Hospitalization)
  Sender: FDA-Public Use
  Company Number: AT-PFIZER INC-2010006637

PATIENT
  Sex: Female
  Weight: 61 kg

DRUGS (1)
  1. CHAMPIX [Suspect]
     Indication: SMOKING CESSATION THERAPY
     Dosage: UNK
     Route: 048
     Dates: start: 20090101

REACTIONS (4)
  - CARDIAC FIBRILLATION [None]
  - DEPRESSION [None]
  - PALPITATIONS [None]
  - PANIC ATTACK [None]
